FAERS Safety Report 12650663 (Version 1)
Quarter: 2016Q3

REPORT INFORMATION
  Report Type: Report from Study
  Country: BR (occurrence: BR)
  Receive Date: 20160815
  Receipt Date: 20160815
  Transmission Date: 20161109
  Serious: Yes (Hospitalization)
  Sender: FDA-Public Use
  Company Number: BR-ROCHE-1813107

PATIENT
  Sex: Male

DRUGS (2)
  1. XOLAIR [Suspect]
     Active Substance: OMALIZUMAB
     Dosage: 4 AMPOULES OF XOLAIR IN EACH APPLICATION OR 4 AMPOULES A MONTH
     Route: 058
  2. XOLAIR [Suspect]
     Active Substance: OMALIZUMAB
     Indication: ASTHMA
     Dosage: UNK UNK, BIW
     Route: 058
     Dates: start: 20080922

REACTIONS (1)
  - Lung infection [Recovering/Resolving]
